FAERS Safety Report 23949843 (Version 3)
Quarter: 2024Q3

REPORT INFORMATION
  Report Type: Report from Study
  Country: US (occurrence: US)
  Receive Date: 20240607
  Receipt Date: 20240905
  Transmission Date: 20241016
  Serious: No
  Sender: ACADIA PHARMACEUTICALS
  Company Number: US-ACADIA PHARMACEUTICALS INC.-ACA-2024-TRF-002412

PATIENT
  Age: 17 Year
  Sex: Female

DRUGS (6)
  1. DAYBUE [Suspect]
     Active Substance: TROFINETIDE
     Indication: Rett syndrome
     Dosage: 20 MILLILITER, BID IN THE AM AND THE PM
     Route: 048
     Dates: start: 202405
  2. DAYBUE [Suspect]
     Active Substance: TROFINETIDE
     Dosage: 30 ML,  IN THE AM AND 20ML IN THE PM
     Route: 048
  3. DAYBUE [Suspect]
     Active Substance: TROFINETIDE
     Dosage: 40 MILLILITER, BID
     Route: 048
  4. DAYBUE [Suspect]
     Active Substance: TROFINETIDE
     Dosage: 20 MILLILITER, BID
     Route: 048
     Dates: start: 20240713
  5. DAYBUE [Suspect]
     Active Substance: TROFINETIDE
     Dosage: 25 ML IN THE AM AND 20 ML IN THE PM
     Route: 048
  6. DAYBUE [Suspect]
     Active Substance: TROFINETIDE
     Dosage: 25 MILLILITER, BID
     Route: 048

REACTIONS (5)
  - Weight decreased [Not Recovered/Not Resolved]
  - Underdose [Not Recovered/Not Resolved]
  - Incorrect dose administered [Not Recovered/Not Resolved]
  - Fatigue [Not Recovered/Not Resolved]
  - Diarrhoea [Not Recovered/Not Resolved]

NARRATIVE: CASE EVENT DATE: 20240512
